FAERS Safety Report 8977717 (Version 1)
Quarter: 2012Q4

REPORT INFORMATION
  Report Type: 
  Country: US (occurrence: US)
  Receive Date: 20121220
  Receipt Date: 20121220
  Transmission Date: 20130627
  Serious: Yes (Other)
  Sender: FDA-Public Use
  Company Number: US-PFIZER INC-2012323358

PATIENT

DRUGS (3)
  1. ARGATROBAN [Suspect]
     Dosage: UNK
  2. HEPARIN SODIUM [Suspect]
     Dosage: UNK
     Route: 040
  3. PLAVIX [Suspect]
     Dosage: UNK

REACTIONS (1)
  - Coagulation time prolonged [Unknown]
